FAERS Safety Report 7995665-1 (Version None)
Quarter: 2011Q4

REPORT INFORMATION
  Report Type: 
  Country: None (occurrence: None)
  Receive Date: 20111220
  Receipt Date: 20111214
  Transmission Date: 20120403
  Serious: Yes (Death, Other)
  Sender: FDA-Public Use
  Company Number: JP-CEPHALON-2011004293

PATIENT
  Sex: Male
  Weight: 65 kg

DRUGS (9)
  1. LANSOPRAZOLE [Concomitant]
     Dates: end: 20110729
  2. MAGNESIUM OXIDE [Concomitant]
     Dates: end: 20110729
  3. BENDAMUSTINE HCL [Suspect]
     Route: 042
     Dates: start: 20110523, end: 20110623
  4. SODIUM GUALENATE [Concomitant]
     Dates: end: 20110729
  5. BENDAMUSTINE HCL [Suspect]
     Indication: MANTLE CELL LYMPHOMA
     Route: 042
     Dates: start: 20110221, end: 20110415
  6. SULFAMETHOXAZOLE AND TRIMETHOPRIM [Concomitant]
     Dates: end: 20110729
  7. DEXAMETHASONE SODIUM PHOSPHATE [Concomitant]
     Dates: start: 20110523, end: 20110526
  8. FUROSEMIDE [Concomitant]
     Dates: end: 20110729
  9. SPIRONOLACTONE [Concomitant]
     Dates: end: 20110729

REACTIONS (7)
  - PLATELET COUNT DECREASED [None]
  - WHITE BLOOD CELL COUNT DECREASED [None]
  - MANTLE CELL LYMPHOMA [None]
  - BLOOD SODIUM DECREASED [None]
  - BLOOD POTASSIUM DECREASED [None]
  - BLOOD UREA INCREASED [None]
  - NEUTROPHIL COUNT DECREASED [None]
